FAERS Safety Report 19042385 (Version 1)
Quarter: 2021Q1

REPORT INFORMATION
  Report Type: Report from Study
  Country: TR (occurrence: TR)
  Receive Date: 20210322
  Receipt Date: 20210322
  Transmission Date: 20210420
  Serious: Yes (Hospitalization)
  Sender: FDA-Public Use
  Company Number: NVSC2021TR064768

PATIENT
  Age: 9 Year
  Sex: Female
  Weight: 28 kg

DRUGS (1)
  1. OMNITROPE [Suspect]
     Active Substance: SOMATROPIN
     Indication: BLOOD GROWTH HORMONE
     Dosage: 1 MG
     Route: 058
     Dates: start: 20210225

REACTIONS (1)
  - COVID-19 [Unknown]

NARRATIVE: CASE EVENT DATE: 20210304
